FAERS Safety Report 6037203-9 (Version None)
Quarter: 2009Q1

REPORT INFORMATION
  Report Type: 
  Country: None (occurrence: None)
  Receive Date: 20090114
  Receipt Date: 20090105
  Transmission Date: 20090719
  Serious: Yes (Hospitalization)
  Sender: FDA-Public Use
  Company Number: US-BIOGENIDEC-2008BI024935

PATIENT
  Age: 50 Year
  Sex: Female
  Weight: 64 kg

DRUGS (2)
  1. AVONEX [Suspect]
     Indication: MULTIPLE SCLEROSIS
     Route: 030
     Dates: start: 20060513
  2. AVONEX [Suspect]
     Route: 030
     Dates: start: 20061101

REACTIONS (8)
  - HYPOAESTHESIA [None]
  - IMMUNE SYSTEM DISORDER [None]
  - INTERVERTEBRAL DISC PROTRUSION [None]
  - MULTIPLE SCLEROSIS RELAPSE [None]
  - MUSCULAR WEAKNESS [None]
  - PAIN IN EXTREMITY [None]
  - PYREXIA [None]
  - VISION BLURRED [None]
